FAERS Safety Report 20802594 (Version 1)
Quarter: 2022Q2

REPORT INFORMATION
  Report Type: Spontaneous
  Country: US (occurrence: None)
  Receive Date: 20220509
  Receipt Date: 20220509
  Transmission Date: 20220721
  Serious: Yes (unspecified)
  Sender: FDA-Public Use
  Company Number: None

PATIENT
  Age: 59 Year
  Sex: Male
  Weight: 126 kg

DRUGS (9)
  1. RYBELSUS [Suspect]
     Active Substance: SEMAGLUTIDE
     Indication: Type 2 diabetes mellitus
     Dosage: OTHER QUANTITY : 1 TABLET(S);?FREQUENCY : DAILY;?
     Route: 048
     Dates: start: 20220315, end: 20220415
  2. CARVEDILOL [Concomitant]
     Active Substance: CARVEDILOL
  3. LOSARTAN [Concomitant]
     Active Substance: LOSARTAN
  4. LIVALO [Concomitant]
     Active Substance: PITAVASTATIN CALCIUM
  5. ASPIRIN [Concomitant]
     Active Substance: ASPIRIN
  6. NITROGLYCERIN [Concomitant]
     Active Substance: NITROGLYCERIN
  7. FISH OIL [Concomitant]
     Active Substance: FISH OIL
  8. VITAMINS [Concomitant]
     Active Substance: VITAMINS
  9. VITAMIN C [Concomitant]
     Active Substance: ASCORBIC ACID

REACTIONS (3)
  - Diarrhoea [None]
  - Therapeutic product effect decreased [None]
  - Abdominal pain lower [None]

NARRATIVE: CASE EVENT DATE: 20220415
